FAERS Safety Report 5640776-9 (Version None)
Quarter: 2008Q1

REPORT INFORMATION
  Report Type: 
  Country: None (occurrence: None)
  Receive Date: 20080227
  Receipt Date: 20080218
  Transmission Date: 20080703
  Serious: Yes (Hospitalization, Other)
  Sender: FDA-Public Use
  Company Number: US-JNJFOC-20080205928

PATIENT
  Sex: Male

DRUGS (2)
  1. DURAGESIC-100 [Suspect]
     Indication: PAIN
     Dosage: 1X 100 UG/HR PATCH PLUS 1X 25UG/HR PATCH
     Route: 062
  2. CLONAZEPAM [Concomitant]
     Indication: SLEEP DISORDER
     Dosage: AT NIGHT
     Route: 048

REACTIONS (11)
  - BLOOD CHOLESTEROL ABNORMAL [None]
  - BLOOD PRESSURE ABNORMAL [None]
  - CARDIAC DISORDER [None]
  - DEPRESSION [None]
  - PAIN [None]
  - PRURITUS GENERALISED [None]
  - STOMACH DISCOMFORT [None]
  - TREATMENT NONCOMPLIANCE [None]
  - TREMOR [None]
  - URTICARIA [None]
  - VOMITING [None]
